FAERS Safety Report 9149039 (Version 1)
Quarter: 2013Q1

REPORT INFORMATION
  Report Type: Spontaneous
  Country: ES (occurrence: None)
  Receive Date: 20130131
  Receipt Date: 20130131
  Transmission Date: 20140127
  Serious: Yes (Other)
  Sender: FDA-Public Use
  Company Number: 2012-19984

PATIENT
  Age: 56 Year
  Sex: Male

DRUGS (2)
  1. MORPHINE SULFATE (UNKNOWN) (MORPHINE SULFATE) UNK, UNKUNK [Suspect]
     Indication: NEURALGIA
     Route: 037
  2. CLONIDINE [Suspect]
     Indication: NEURALGIA
     Route: 048

REACTIONS (5)
  - Infusion site granuloma [None]
  - Therapeutic product ineffective [None]
  - Meningioma [None]
  - Condition aggravated [None]
  - Central nervous system lesion [None]
